FAERS Safety Report 4735670-1 (Version None)
Quarter: 2005Q3

REPORT INFORMATION
  Report Type: 
  Country: None (occurrence: None)
  Receive Date: 20050804
  Receipt Date: 20050722
  Transmission Date: 20060218
  Serious: Yes (Hospitalization, Other)
  Sender: FDA-Public Use
  Company Number: 2005106144

PATIENT
  Age: 35 Year
  Sex: Female
  Weight: 181.4388 kg

DRUGS (1)
  1. NEURONTIN [Suspect]
     Indication: BIPOLAR DISORDER
     Dosage: 1500 MG (2 IN 1 D), ORAL
     Route: 048
     Dates: start: 20050601

REACTIONS (3)
  - HOMICIDAL IDEATION [None]
  - MEMORY IMPAIRMENT [None]
  - SUICIDAL IDEATION [None]
